FAERS Safety Report 22071316 (Version 1)
Quarter: 2023Q1

REPORT INFORMATION
  Report Type: Spontaneous
  Country: US (occurrence: None)
  Receive Date: 20230307
  Receipt Date: 20230307
  Transmission Date: 20230418
  Serious: Yes (Hospitalization)
  Sender: FDA-Public Use
  Company Number: None

PATIENT
  Sex: Male

DRUGS (17)
  1. MYCOPHENOLIC ACID [Suspect]
     Active Substance: MYCOPHENOLIC ACID
     Indication: Renal transplant
     Dosage: 250 MG ORAL??TAKE 4 CAPULES BY MOUTH TWICE DAILY
     Route: 048
     Dates: start: 20190323
  2. AZITHROMYCIN TAB [Concomitant]
  3. DICYCLOMINE CAP [Concomitant]
  4. FLUTICASONE SPR [Concomitant]
  5. FOCALIN TAB [Concomitant]
  6. HYOSCYAMINE TAB [Concomitant]
  7. LISINOPRIL [Concomitant]
     Active Substance: LISINOPRIL
  8. MYCOPHENOLATE MOFETIL [Concomitant]
     Active Substance: MYCOPHENOLATE MOFETIL
  9. ONDANSETRON TAB [Concomitant]
  10. ONDANSETRON TAB ODT [Concomitant]
  11. SERTRALINE HYDROCHLORIDE [Concomitant]
     Active Substance: SERTRALINE HYDROCHLORIDE
  12. TACROLIMUS [Concomitant]
     Active Substance: TACROLIMUS
  13. TACROLIMUS [Concomitant]
     Active Substance: TACROLIMUS
  14. TACROLIMUS [Concomitant]
     Active Substance: TACROLIMUS
  15. TACROLIMUS [Concomitant]
     Active Substance: TACROLIMUS
  16. VITAMIN D CAP [Concomitant]
  17. ZANTAC TAB [Concomitant]

REACTIONS (1)
  - Dehydration [None]
